FAERS Safety Report 18574759 (Version 1)
Quarter: 2020Q4

REPORT INFORMATION
  Report Type: Spontaneous
  Country: US (occurrence: US)
  Receive Date: 20201202
  Receipt Date: 20201202
  Transmission Date: 20210114
  Serious: No
  Sender: FDA-Public Use
  Company Number: None

PATIENT
  Age: 72 Year
  Sex: Male

DRUGS (1)
  1. APIXABAN (APIXABAN 5MG TAB) [Suspect]
     Active Substance: APIXABAN
     Indication: ATRIAL FIBRILLATION
     Route: 048
     Dates: start: 20200701, end: 20200916

REACTIONS (4)
  - Hypoaesthesia [None]
  - Dizziness [None]
  - Paraesthesia [None]
  - Burning sensation [None]

NARRATIVE: CASE EVENT DATE: 20200916
